FAERS Safety Report 14467043 (Version 1)
Quarter: 2018Q1

REPORT INFORMATION
  Report Type: Spontaneous
  Country: US (occurrence: US)
  Receive Date: 20180130
  Receipt Date: 20180130
  Transmission Date: 20180509
  Serious: No
  Sender: FDA-Public Use
  Company Number: None

PATIENT
  Age: 58 Year
  Sex: Female
  Weight: 87.1 kg

DRUGS (1)
  1. BEVACIZUMAB (RHUMAB VEGF) [Suspect]
     Active Substance: BEVACIZUMAB
     Dates: end: 20180110

REACTIONS (4)
  - Lung consolidation [None]
  - Pulmonary embolism [None]
  - Pulmonary mass [None]
  - Lower respiratory tract infection fungal [None]

NARRATIVE: CASE EVENT DATE: 20180119
